FAERS Safety Report 6505142-2 (Version None)
Quarter: 2009Q4

REPORT INFORMATION
  Report Type: 
  Country: None (occurrence: None)
  Receive Date: 20091218
  Receipt Date: 20091209
  Transmission Date: 20100525
  Serious: Yes (Other)
  Sender: FDA-Public Use
  Company Number: PHHY2009CA49341

PATIENT
  Sex: Female

DRUGS (1)
  1. ACLASTA [Suspect]
     Indication: OSTEOPOROSIS
     Dosage: UNK
     Dates: start: 20091020

REACTIONS (4)
  - ERYTHEMA [None]
  - EYE DISORDER [None]
  - EYE IRRITATION [None]
  - OCULAR DISCOMFORT [None]
